FAERS Safety Report 14951711 (Version 1)
Quarter: 2018Q2

REPORT INFORMATION
  Report Type: Spontaneous
  Country: US (occurrence: US)
  Receive Date: 20180530
  Receipt Date: 20180530
  Transmission Date: 20180711
  Serious: Yes (Other)
  Sender: FDA-Public Use
  Company Number: US-PFIZER INC-2018216856

PATIENT
  Age: 51 Year
  Sex: Male

DRUGS (1)
  1. BICILLIN L-A [Suspect]
     Active Substance: PENICILLIN G BENZATHINE
     Indication: SYPHILIS
     Dosage: 2.4 MILLION UNITS INTRAMUSCULAR INJECTION ONCE
     Route: 030

REACTIONS (3)
  - Injection site pain [Unknown]
  - Urticaria [Not Recovered/Not Resolved]
  - Granuloma [Recovering/Resolving]

NARRATIVE: CASE EVENT DATE: 20171107
